FAERS Safety Report 7299269-8 (Version None)
Quarter: 2011Q1

REPORT INFORMATION
  Report Type: 
  Country: None (occurrence: None)
  Receive Date: 20110217
  Receipt Date: 20110208
  Transmission Date: 20110831
  Serious: Yes (Death, Hospitalization)
  Sender: FDA-Public Use
  Company Number: JP-ELI_LILLY_AND_COMPANY-JP201101007348

PATIENT
  Sex: Male
  Weight: 62.5 kg

DRUGS (9)
  1. ALOSITOL [Concomitant]
     Indication: HYPERURICAEMIA
     Dosage: 100 MG, DAILY (1/D)
     Route: 048
     Dates: end: 20110123
  2. MAGMITT [Concomitant]
     Indication: CONSTIPATION
     Dosage: 990 MG, DAILY (1/D)
     Route: 048
     Dates: end: 20110123
  3. NORVASC [Concomitant]
     Indication: HYPERTENSION
     Dosage: 5 MG, DAILY (1/D)
     Route: 048
     Dates: end: 20110123
  4. CARVEDILOL [Concomitant]
     Indication: HYPERTENSION
     Dosage: 2.5 MG, DAILY (1/D)
     Route: 048
     Dates: end: 20110123
  5. ALIMTA [Suspect]
     Indication: NON-SMALL CELL LUNG CANCER RECURRENT
     Dosage: 660 MG, OTHER
     Route: 042
     Dates: start: 20110114, end: 20110114
  6. SPIRIVA [Concomitant]
     Indication: EMPHYSEMA
     Dosage: 18 UG, DAILY (1/D)
     Route: 048
     Dates: start: 20091101, end: 20110123
  7. MUCOSOLVAN [Concomitant]
     Indication: BRONCHITIS CHRONIC
     Dosage: 45 MG, DAILY (1/D)
     Route: 048
     Dates: end: 20110123
  8. COMELIAN [Concomitant]
     Indication: PROPHYLAXIS
     Dosage: 300 MG, DAILY (1/D)
     Route: 048
     Dates: end: 20110123
  9. PANVITAN [Concomitant]
     Indication: PROPHYLAXIS
     Dosage: 1 G, DAILY (1/D)
     Route: 048
     Dates: start: 20110107, end: 20110123

REACTIONS (3)
  - BONE MARROW FAILURE [None]
  - RENAL FAILURE CHRONIC [None]
  - SEPSIS [None]
